FAERS Safety Report 5972551-X (Version None)
Quarter: 2008Q4

REPORT INFORMATION
  Report Type: 
  Country: None (occurrence: None)
  Receive Date: 20081201
  Receipt Date: 20081126
  Transmission Date: 20090506
  Serious: Yes (Hospitalization)
  Sender: FDA-Public Use
  Company Number: B0547524A

PATIENT
  Age: 43 Year
  Sex: Female

DRUGS (3)
  1. KIVEXA [Suspect]
     Indication: HIV INFECTION
     Dosage: 1TAB PER DAY
     Route: 048
     Dates: start: 20081028
  2. BLINDED TRIAL MEDICATION [Suspect]
     Indication: HIV INFECTION
     Route: 048
     Dates: start: 20081028
  3. BLINDED TRIAL MEDICATION [Suspect]
     Route: 048
     Dates: start: 20081028

REACTIONS (13)
  - ASTHENIA [None]
  - BACK PAIN [None]
  - CANDIDIASIS [None]
  - CHILLS [None]
  - DELIRIUM [None]
  - DRUG HYPERSENSITIVITY [None]
  - HYPERHIDROSIS [None]
  - MYALGIA [None]
  - OROPHARYNGEAL PAIN [None]
  - PAIN [None]
  - PYREXIA [None]
  - SOMNOLENCE [None]
  - VIRAL INFECTION [None]
